FAERS Safety Report 9642816 (Version 1)
Quarter: 2013Q4

REPORT INFORMATION
  Report Type: Report from Study
  Country: DE (occurrence: DE)
  Receive Date: 20131024
  Receipt Date: 20131024
  Transmission Date: 20140711
  Serious: Yes (Hospitalization)
  Sender: FDA-Public Use
  Company Number: DE-JNJFOC-20131010216

PATIENT
  Age: 47 Year
  Sex: Male
  Weight: 59 kg

DRUGS (3)
  1. INFLIXIMAB, RECOMBINANT [Suspect]
     Indication: ANKYLOSING SPONDYLITIS
     Route: 042
     Dates: start: 20000824
  2. INFLUENZA VACCINE [Concomitant]
     Route: 030
     Dates: start: 20121115, end: 20121115
  3. DICLOFENAC [Concomitant]
     Route: 065
     Dates: start: 2008

REACTIONS (2)
  - Barrett^s oesophagus [Recovered/Resolved]
  - Tonsillitis [Recovered/Resolved]
